FAERS Safety Report 5037331-0 (Version None)
Quarter: 2006Q2

REPORT INFORMATION
  Report Type: 
  Country: None (occurrence: None)
  Receive Date: 20060608
  Receipt Date: 20050707
  Transmission Date: 20061013
  Serious: No
  Sender: FDA-Public Use
  Company Number: APP200500328

PATIENT
  Age: 3 Year
  Sex: 0

DRUGS (2)
  1. PROTAMINE SULFATE [Suspect]
     Indication: HEPARIN NEUTRALISATION THERAPY
     Dosage: ONCE, INTRAVENOUS
     Route: 042
  2. PROTAMINE SULFATE [Suspect]

REACTIONS (1)
  - HYPOTENSION [None]
